FAERS Safety Report 5298999-7 (Version None)
Quarter: 2007Q2

REPORT INFORMATION
  Report Type: 
  Country: None (occurrence: None)
  Receive Date: 20070412
  Receipt Date: 20070412
  Transmission Date: 20071010
  Serious: Yes (Other)
  Sender: FDA-Public Use
  Company Number: None

PATIENT
  Age: 71 Year

DRUGS (1)
  1. GABAPENTIN [Suspect]

REACTIONS (4)
  - APHTHOUS STOMATITIS [None]
  - DYSPEPSIA [None]
  - DYSPHAGIA [None]
  - ORAL CANDIDIASIS [None]
